FAERS Safety Report 6255925-1 (Version None)
Quarter: 2009Q3

REPORT INFORMATION
  Report Type: 
  Country: None (occurrence: None)
  Receive Date: 20090705
  Receipt Date: 20090630
  Transmission Date: 20100115
  Serious: Yes (Hospitalization)
  Sender: FDA-Public Use
  Company Number: US-ALLERGAN-0909160US

PATIENT
  Sex: Female

DRUGS (1)
  1. BOTOX [Suspect]
     Indication: DRUG USE FOR UNKNOWN INDICATION
     Dosage: 50 UNITS, SINGLE
     Route: 030

REACTIONS (2)
  - THROAT TIGHTNESS [None]
  - WRONG TECHNIQUE IN DRUG USAGE PROCESS [None]
